FAERS Safety Report 8282044-5 (Version None)
Quarter: 2012Q2

REPORT INFORMATION
  Report Type: 
  Country: None (occurrence: None)
  Receive Date: 20120413
  Receipt Date: 20120406
  Transmission Date: 20120825
  Serious: Yes (Hospitalization)
  Sender: FDA-Public Use
  Company Number: AT-SANOFI-AVENTIS-2012SA024785

PATIENT
  Age: 58 Year
  Sex: Male
  Weight: 60 kg

DRUGS (17)
  1. CALCIUM CARBONATE [Concomitant]
     Dosage: FREQUENCY: ON DAY 1 + DAY 15 OF CHEMOTHERAPY CYCLE
     Dates: start: 20120105
  2. PANTOPRAZOLE SODIUM [Concomitant]
     Dates: start: 20090101
  3. AUGMENTIN '125' [Concomitant]
     Dates: start: 20120403
  4. MEXALEN [Concomitant]
     Dates: start: 20120103
  5. PASPERTIN [Concomitant]
     Dosage: DOSAGE: 20 DROPS
     Dates: start: 20120105
  6. OXALIPLATIN [Suspect]
     Indication: METASTATIC GASTRIC CANCER
     Route: 042
     Dates: start: 20120105, end: 20120228
  7. TRAMABENE [Concomitant]
     Dates: start: 20120403
  8. IRINOTECAN HCL [Suspect]
     Indication: METASTATIC GASTRIC CANCER
     Route: 042
     Dates: start: 20120105, end: 20120228
  9. AVASTIN [Suspect]
     Indication: METASTATIC GASTRIC CANCER
     Route: 042
     Dates: start: 20120105, end: 20120228
  10. ATROPINE [Concomitant]
     Dosage: FREQUENCY: ON DAY 1 + 15 OF CHEMOTHERAPY CYCLE
     Dates: start: 20120105
  11. DIPYRONE TAB [Concomitant]
     Dosage: DOSAGE: 20 DROPS
     Dates: start: 20120105
  12. GRANISETRON [Concomitant]
     Dates: start: 20120201
  13. ZOFRAN [Concomitant]
     Dates: start: 20120105
  14. KYTRIL [Concomitant]
     Dosage: FREQUENCY: BEFORE CHEMOTHERAPY ON DAY 1+ DAY 15
     Dates: start: 20120105
  15. MAGNESIUM [Concomitant]
     Dosage: FREQUENCY: ON DAY 1 + 15 OF CHEMOTHERAPY CYCLE
     Dates: start: 20120105
  16. RULIDE [Concomitant]
     Dates: start: 20120403
  17. TRAMADOL HYDROCHLORIDE [Concomitant]
     Dates: start: 20120403

REACTIONS (1)
  - CIRCULATORY COLLAPSE [None]
